FAERS Safety Report 7080366-7 (Version None)
Quarter: 2010Q4

REPORT INFORMATION
  Report Type: 
  Country: None (occurrence: None)
  Receive Date: 20101103
  Receipt Date: 20101026
  Transmission Date: 20110411
  Serious: Yes (Hospitalization)
  Sender: FDA-Public Use
  Company Number: JP-JNJFOC-20101100170

PATIENT
  Sex: Female

DRUGS (2)
  1. DOXORUBICIN HYDROCHLORIDE [Suspect]
     Indication: ILL-DEFINED DISORDER
     Route: 042
  2. DOXORUBICIN HYDROCHLORIDE [Suspect]
     Route: 042

REACTIONS (1)
  - MYOCARDIAL INFARCTION [None]
